FAERS Safety Report 6297796-3 (Version None)
Quarter: 2009Q3

REPORT INFORMATION
  Report Type: 
  Country: None (occurrence: None)
  Receive Date: 20090804
  Receipt Date: 20090804
  Transmission Date: 20100115
  Serious: No
  Sender: FDA-Public Use
  Company Number: None

PATIENT
  Age: 65 Year
  Sex: Male

DRUGS (1)
  1. VIMPAT [Suspect]
     Indication: TEMPORAL LOBE EPILEPSY
     Dosage: 100 MG, BID, PO
     Route: 048
     Dates: start: 20090603, end: 20090715

REACTIONS (1)
  - DECREASED APPETITE [None]
